FAERS Safety Report 9900434 (Version 1)
Quarter: 2014Q1

REPORT INFORMATION
  Report Type: Report from Study
  Country: US (occurrence: US)
  Receive Date: 20140217
  Receipt Date: 20140217
  Transmission Date: 20141002
  Serious: Yes (Other)
  Sender: FDA-Public Use
  Company Number: US-ROCHE-1346822

PATIENT
  Age: 77 Year
  Sex: Female
  Weight: 44.95 kg

DRUGS (3)
  1. AVASTIN [Suspect]
     Indication: AGE-RELATED MACULAR DEGENERATION
     Dosage: INJECTION LEFT EYE
     Route: 065
     Dates: start: 20131127, end: 20131231
  2. LUCENTIS [Suspect]
     Indication: AGE-RELATED MACULAR DEGENERATION
     Dosage: INJECTION LEFT EYE
     Route: 065
     Dates: start: 20140205
  3. ATORVASTATIN [Concomitant]
     Indication: BLOOD CHOLESTEROL
     Route: 048
     Dates: start: 201306

REACTIONS (4)
  - Eye irritation [Recovered/Resolved]
  - Eye irritation [Recovered/Resolved]
  - Lacrimation increased [Recovered/Resolved]
  - Lacrimation increased [Recovered/Resolved]
